FAERS Safety Report 6894421-5 (Version None)
Quarter: 2010Q3

REPORT INFORMATION
  Report Type: 
  Country: None (occurrence: None)
  Receive Date: 20100728
  Receipt Date: 20100713
  Transmission Date: 20110219
  Serious: Yes (Death, Other)
  Sender: FDA-Public Use
  Company Number: 2010RR-36146

PATIENT
  Age: 64 Year
  Sex: Female
  Weight: 65 kg

DRUGS (7)
  1. FLUOXETINE [Suspect]
     Indication: DEPRESSION
     Dosage: 40 MG, QD, ORAL
     Route: 048
     Dates: start: 20080618, end: 20091101
  2. TRAMADOL HCL [Suspect]
     Indication: PAIN
     Dosage: 50 MG, QID, ORAL
     Route: 048
     Dates: start: 20070101, end: 20091101
  3. ALENDRONATE (ALENDRONATE ACID) [Concomitant]
  4. FOLIC ACID [Concomitant]
  5. OLANZAPINE [Concomitant]
  6. OMEPRAZOLE [Concomitant]
  7. PREDNISOLONE [Concomitant]

REACTIONS (3)
  - COMPLETED SUICIDE [None]
  - PSYCHOTIC DISORDER [None]
  - THINKING ABNORMAL [None]
